FAERS Safety Report 15291862 (Version 4)
Quarter: 2019Q1

REPORT INFORMATION
  Report Type: Spontaneous
  Country: US (occurrence: US)
  Receive Date: 20180817
  Receipt Date: 20190228
  Transmission Date: 20190417
  Serious: Yes (Death, Hospitalization)
  Sender: FDA-Public Use
  Company Number: US-PRINSTON PHARMACEUTICAL INC.-2018PRN00812

PATIENT
  Age: 68 Year
  Sex: Male

DRUGS (1)
  1. VALSARTAN. [Suspect]
     Active Substance: VALSARTAN
     Indication: BLOOD PRESSURE ABNORMAL
     Dosage: 80 MG, 1X/DAY
     Route: 048

REACTIONS (9)
  - Feeling cold [Unknown]
  - Fatigue [Unknown]
  - Chromaturia [Unknown]
  - Metastases to liver [Fatal]
  - Speech disorder [Unknown]
  - Asthenia [Unknown]
  - Rectal cancer [Fatal]
  - Anal incontinence [Unknown]
  - Dehydration [Unknown]

NARRATIVE: CASE EVENT DATE: 20160628
